FAERS Safety Report 25598038 (Version 2)
Quarter: 2025Q3

REPORT INFORMATION
  Report Type: Report from Study
  Country: GB (occurrence: GB)
  Receive Date: 20250723
  Receipt Date: 20250813
  Transmission Date: 20251020
  Serious: Yes (Hospitalization)
  Sender: EMD SERONO INC
  Company Number: GB-Merck Healthcare KGaA-2025036391

PATIENT
  Sex: Male
  Weight: 79 kg

DRUGS (2)
  1. MAVENCLAD [Suspect]
     Active Substance: CLADRIBINE
     Indication: Multiple sclerosis
     Dates: start: 20240429
  2. MAVENCLAD [Suspect]
     Active Substance: CLADRIBINE
     Dates: start: 20240529

REACTIONS (6)
  - Infection [Unknown]
  - Urinary tract infection bacterial [Not Recovered/Not Resolved]
  - Multiple sclerosis pseudo relapse [Unknown]
  - Muscle atrophy [Unknown]
  - Weight decreased [Unknown]
  - Intercepted product prescribing error [Unknown]
